FAERS Safety Report 6122725-2 (Version None)
Quarter: 2009Q1

REPORT INFORMATION
  Report Type: 
  Country: None (occurrence: None)
  Receive Date: 20090318
  Receipt Date: 20090316
  Transmission Date: 20090719
  Serious: Yes (Other)
  Sender: FDA-Public Use
  Company Number: PT-ABBOTT-09P-130-0562800-00

PATIENT
  Sex: Male
  Weight: 18 kg

DRUGS (2)
  1. KLACID [Suspect]
     Indication: DRUG USE FOR UNKNOWN INDICATION
     Dates: start: 20090115
  2. BRUFEN [Concomitant]
     Indication: DRUG USE FOR UNKNOWN INDICATION
     Dates: start: 20090115, end: 20090118

REACTIONS (3)
  - ASTHENIA [None]
  - HEADACHE [None]
  - SOMNOLENCE [None]
